FAERS Safety Report 16454735 (Version 1)
Quarter: 2019Q2

REPORT INFORMATION
  Report Type: Spontaneous
  Country: US (occurrence: US)
  Receive Date: 20190619
  Receipt Date: 20190619
  Transmission Date: 20190711
  Serious: No
  Sender: FDA-Public Use
  Company Number: US-ROCHE-2157901

PATIENT
  Age: 66 Year
  Sex: Female
  Weight: 74.46 kg

DRUGS (15)
  1. LYRICA [Concomitant]
     Active Substance: PREGABALIN
  2. CELEBREX [Concomitant]
     Active Substance: CELECOXIB
     Route: 065
  3. CYMBALTA [Concomitant]
     Active Substance: DULOXETINE HYDROCHLORIDE
  4. FOLIC ACID. [Concomitant]
     Active Substance: FOLIC ACID
  5. PREVACID [Concomitant]
     Active Substance: LANSOPRAZOLE
     Route: 065
  6. VOLTAREN [DICLOFENAC] [Concomitant]
     Active Substance: DICLOFENAC SODIUM
     Route: 065
  7. SYNTHROID [Concomitant]
     Active Substance: LEVOTHYROXINE SODIUM
  8. METHOTREXATE. [Concomitant]
     Active Substance: METHOTREXATE
  9. ACTEMRA [Suspect]
     Active Substance: TOCILIZUMAB
     Indication: RHEUMATOID ARTHRITIS
     Dosage: ONGOING:YES
     Route: 058
     Dates: start: 201802
  10. WELLBUTRIN [Concomitant]
     Active Substance: BUPROPION HYDROCHLORIDE
  11. HUMIRA [Concomitant]
     Active Substance: ADALIMUMAB
  12. PREDNISONE. [Concomitant]
     Active Substance: PREDNISONE
  13. OXYCODONE [Concomitant]
     Active Substance: OXYCODONE
  14. DILAUDID [Concomitant]
     Active Substance: HYDROMORPHONE HYDROCHLORIDE
  15. MORPHINE SULFATE EXTENDED RELEASE [Concomitant]
     Active Substance: MORPHINE SULFATE
     Route: 065
     Dates: start: 201806

REACTIONS (11)
  - Oral mucosal blistering [Unknown]
  - Arthralgia [Not Recovered/Not Resolved]
  - Musculoskeletal pain [Unknown]
  - Infection [Unknown]
  - Arthralgia [Unknown]
  - Syringe issue [Unknown]
  - Oral herpes [Recovered/Resolved]
  - Product dose omission [Unknown]
  - Ill-defined disorder [Unknown]
  - Breakthrough pain [Not Recovered/Not Resolved]
  - Musculoskeletal disorder [Unknown]

NARRATIVE: CASE EVENT DATE: 201803
